FAERS Safety Report 6218720-5 (Version None)
Quarter: 2009Q2

REPORT INFORMATION
  Report Type: 
  Country: None (occurrence: None)
  Receive Date: 20090608
  Receipt Date: 20090526
  Transmission Date: 20091009
  Serious: Yes (Hospitalization)
  Sender: FDA-Public Use
  Company Number: US-ELI_LILLY_AND_COMPANY-US200905005067

PATIENT
  Sex: Female

DRUGS (6)
  1. HUMALOG MIX 75/25 [Suspect]
  2. METFORMIN HYDROCHLORIDE [Concomitant]
  3. GLIMEPIRIDE [Concomitant]
  4. DIGOXIN [Concomitant]
  5. HYDROCHLOROTHIAZIDE [Concomitant]
  6. BENAZEPRIL HYDROCHLORIDE [Concomitant]

REACTIONS (3)
  - BLOOD GLUCOSE DECREASED [None]
  - HYPOAESTHESIA ORAL [None]
  - HYPOGLYCAEMIC UNCONSCIOUSNESS [None]
